FAERS Safety Report 5953003-X (Version None)
Quarter: 2008Q4

REPORT INFORMATION
  Report Type: 
  Country: None (occurrence: None)
  Receive Date: 20081114
  Receipt Date: 20080718
  Transmission Date: 20090506
  Serious: Yes (Life-Threatening, Hospitalization, Other)
  Sender: FDA-Public Use
  Company Number: US-BRISTOL-MYERS SQUIBB COMPANY-14267660

PATIENT
  Age: 58 Year
  Sex: Female
  Weight: 61 kg

DRUGS (10)
  1. IXEMPRA KIT [Suspect]
     Indication: BREAST CANCER
     Dosage: 2ND INFUSION: 40MG IV  ON 07-JUL-2008, 3RD INFUSION: 50MG IV
     Route: 042
     Dates: start: 20080521, end: 20080521
  2. DECADRON [Concomitant]
     Indication: PREMEDICATION
  3. SYNTHROID [Concomitant]
  4. NEXIUM [Concomitant]
  5. CYMBALTA [Concomitant]
  6. PROPRANOLOL [Concomitant]
  7. FOLIC ACID [Concomitant]
  8. ALLEGRA-D [Concomitant]
  9. MUCINEX [Concomitant]
  10. PREDNISONE TAB [Concomitant]

REACTIONS (4)
  - HEART RATE INCREASED [None]
  - INFUSION RELATED REACTION [None]
  - PAIN [None]
  - PLATELET COUNT DECREASED [None]
